FAERS Safety Report 6434888-X (Version None)
Quarter: 2009Q4

REPORT INFORMATION
  Report Type: 
  Country: None (occurrence: None)
  Receive Date: 20091109
  Receipt Date: 20091109
  Transmission Date: 20100525
  Serious: Yes (Other)
  Sender: FDA-Public Use
  Company Number: None

PATIENT
  Sex: Female
  Weight: 52.3 kg

DRUGS (1)
  1. ACTONEL [Suspect]
     Indication: OSTEOPOROSIS
     Dosage: 35 MG. WEEKLY
     Dates: start: 20090901, end: 20091101

REACTIONS (4)
  - ABASIA [None]
  - BACK PAIN [None]
  - BONE PAIN [None]
  - HEART RATE IRREGULAR [None]
